FAERS Safety Report 10146356 (Version 1)
Quarter: 2014Q2

REPORT INFORMATION
  Report Type: Spontaneous
  Country: US (occurrence: None)
  Receive Date: 20140429
  Receipt Date: 20140429
  Transmission Date: 20141212
  Serious: Yes (Hospitalization, Other)
  Sender: FDA-Public Use
  Company Number: US-ZYDUS-003115

PATIENT
  Age: 78 Year
  Sex: Male

DRUGS (2)
  1. AMIODARONE [Suspect]
     Indication: ATRIAL FIBRILLATION
  2. WARFARIN [Suspect]

REACTIONS (8)
  - Drug interaction [None]
  - Myxoedema coma [None]
  - Lip injury [None]
  - Haemorrhage [None]
  - Hypothermia [None]
  - Bradycardia [None]
  - International normalised ratio increased [None]
  - Cardio-respiratory arrest [None]
